FAERS Safety Report 6698192-7 (Version None)
Quarter: 2010Q2

REPORT INFORMATION
  Report Type: 
  Country: None (occurrence: None)
  Receive Date: 20100427
  Receipt Date: 20100420
  Transmission Date: 20101027
  Serious: Yes (Death)
  Sender: FDA-Public Use
  Company Number: US-SANOFI-AVENTIS-2010SA019697

PATIENT
  Age: 64 Year
  Sex: Female
  Weight: 94.33 kg

DRUGS (10)
  1. PLAVIX [Suspect]
     Route: 048
     Dates: start: 20071001, end: 20100401
  2. PLAVIX [Suspect]
     Indication: CORONARY ARTERY DISEASE
     Route: 048
     Dates: start: 20071001, end: 20100401
  3. PLAVIX [Suspect]
     Indication: CAROTID ARTERY STENOSIS
     Route: 048
     Dates: start: 20071001, end: 20100401
  4. ASPIRIN [Concomitant]
     Route: 048
     Dates: end: 20100401
  5. ALBUTEROL [Concomitant]
     Indication: CHRONIC OBSTRUCTIVE PULMONARY DISEASE
  6. SYMBICORT [Concomitant]
     Indication: CHRONIC OBSTRUCTIVE PULMONARY DISEASE
  7. COREG [Concomitant]
     Dates: start: 20070101, end: 20100401
  8. LASIX [Concomitant]
     Dates: start: 20070101, end: 20100401
  9. LISINOPRIL [Concomitant]
     Dates: start: 20070101, end: 20100401
  10. LISINOPRIL [Concomitant]
     Indication: HYPERTENSION
     Dates: start: 20070101, end: 20100401

REACTIONS (1)
  - DEATH [None]
